FAERS Safety Report 18618764 (Version 1)
Quarter: 2020Q4

REPORT INFORMATION
  Report Type: Spontaneous
  Country: US (occurrence: US)
  Receive Date: 20201215
  Receipt Date: 20201215
  Transmission Date: 20210114
  Serious: Yes (Hospitalization)
  Sender: FDA-Public Use
  Company Number: None

PATIENT
  Age: 78 Year
  Sex: Male
  Weight: 98.9 kg

DRUGS (2)
  1. CEPHALEXIN. [Concomitant]
     Active Substance: CEPHALEXIN
     Dates: start: 20201204
  2. BAMLANIVIMAB. [Suspect]
     Active Substance: BAMLANIVIMAB
     Indication: COVID-19
     Dosage: ?          OTHER FREQUENCY:ONCE;?
     Route: 040
     Dates: start: 20201207, end: 20201207

REACTIONS (6)
  - Chills [None]
  - Myalgia [None]
  - Hypoxia [None]
  - Lung infiltration [None]
  - Nausea [None]
  - Pyrexia [None]

NARRATIVE: CASE EVENT DATE: 20201208
